FAERS Safety Report 9926530 (Version 1)
Quarter: 2014Q1

REPORT INFORMATION
  Report Type: Spontaneous
  Country: US (occurrence: US)
  Receive Date: 20140226
  Receipt Date: 20140226
  Transmission Date: 20141002
  Serious: No
  Sender: FDA-Public Use
  Company Number: US-AMGEN-USASP2013073297

PATIENT
  Age: 52 Year
  Sex: Female

DRUGS (3)
  1. ENBREL [Suspect]
     Indication: RHEUMATOID ARTHRITIS
     Dosage: 2.5 MG, QWK
     Route: 065
     Dates: start: 20121017, end: 2013
  2. METHOTREXATE [Concomitant]
     Dosage: 4 MG, QWK
     Dates: start: 201210, end: 2013
  3. PLAQUENIL                          /00072602/ [Concomitant]
     Dosage: 400 MG, QD
     Dates: start: 201205

REACTIONS (3)
  - Joint swelling [Recovered/Resolved]
  - Musculoskeletal stiffness [Recovered/Resolved]
  - Pain in extremity [Recovered/Resolved]
